FAERS Safety Report 16384976 (Version 1)
Quarter: 2019Q2

REPORT INFORMATION
  Report Type: Spontaneous
  Country: DE (occurrence: DE)
  Receive Date: 20190603
  Receipt Date: 20190603
  Transmission Date: 20190711
  Serious: Yes (Death, Life-Threatening, Hospitalization, Other)
  Sender: FDA-Public Use
  Company Number: DE-ELI_LILLY_AND_COMPANY-DE201905015132

PATIENT
  Sex: Male
  Weight: 65 kg

DRUGS (12)
  1. CISPLATIN. [Suspect]
     Active Substance: CISPLATIN
     Indication: NON-SMALL CELL LUNG CANCER
     Dosage: UNK UNK, UNKNOWN
     Route: 065
     Dates: start: 201706, end: 201711
  2. CARVEDILOL. [Concomitant]
     Active Substance: CARVEDILOL
     Indication: HYPERTENSION
     Dosage: 6.25 MG, DAILY
     Route: 048
     Dates: start: 20170412
  3. ATORVASTATIN [Concomitant]
     Active Substance: ATORVASTATIN
     Indication: HYPERCHOLESTEROLAEMIA
     Dosage: 30 MG, DAILY
     Route: 048
     Dates: start: 20170412
  4. PEMETREXED. [Suspect]
     Active Substance: PEMETREXED
     Indication: NON-SMALL CELL LUNG CANCER
     Dosage: UNK UNK, UNKNOWN
     Route: 065
     Dates: start: 201706, end: 201711
  5. NIVOLUMAB [Suspect]
     Active Substance: NIVOLUMAB
     Dosage: 185 DOSAGE FORM, 2/M
     Route: 065
     Dates: start: 20171026, end: 20180201
  6. OXYCODONE [Concomitant]
     Active Substance: OXYCODONE
     Indication: PAIN
     Dosage: 20 MG, DAILY
     Route: 048
     Dates: start: 20170412
  7. NIVOLUMAB [Suspect]
     Active Substance: NIVOLUMAB
     Dosage: 215 DOSAGE FORM, 2/M
     Route: 065
     Dates: start: 20180215, end: 20180315
  8. ASPIRIN. [Concomitant]
     Active Substance: ASPIRIN
     Indication: HYPERTENSION
     Dosage: 1 G, DAILY
     Route: 048
     Dates: start: 20170412
  9. LYRICA [Concomitant]
     Active Substance: PREGABALIN
     Indication: PAIN
     Dosage: 150 MG, DAILY
     Route: 048
     Dates: start: 20170412
  10. ULTIBRO BREEZHALER [Concomitant]
     Active Substance: GLYCOPYRRONIUM\INDACATEROL
     Indication: CHRONIC OBSTRUCTIVE PULMONARY DISEASE
     Dosage: 85 UG, DAILY
     Route: 048
     Dates: start: 20170412
  11. PANTOPRAZOLE [Concomitant]
     Active Substance: PANTOPRAZOLE
     Indication: PROPHYLAXIS
     Dosage: 40 MG, DAILY
     Route: 048
     Dates: start: 20170412
  12. NIVOLUMAB [Suspect]
     Active Substance: NIVOLUMAB
     Indication: LUNG NEOPLASM MALIGNANT
     Dosage: 195 DOSAGE FORM, 2/M
     Route: 065
     Dates: start: 20170720, end: 20171012

REACTIONS (5)
  - Drug-induced liver injury [Unknown]
  - Liver function test increased [Unknown]
  - Infection [Unknown]
  - Malignant neoplasm progression [Fatal]
  - Interstitial lung disease [Unknown]

NARRATIVE: CASE EVENT DATE: 20180316
